FAERS Safety Report 9878163 (Version 1)
Quarter: 2014Q1

REPORT INFORMATION
  Report Type: Spontaneous
  Country: US (occurrence: US)
  Receive Date: 20140206
  Receipt Date: 20140206
  Transmission Date: 20141002
  Serious: Yes (Other)
  Sender: FDA-Public Use
  Company Number: PHEH2014US002395

PATIENT
  Sex: Female

DRUGS (5)
  1. EXFORGE [Suspect]
  2. LISINOPRIL [Suspect]
  3. HERCEPTIN [Concomitant]
     Dosage: UNK UKN, UNK
  4. ANASTROZOLE [Concomitant]
     Indication: ANTIOESTROGEN THERAPY
     Dosage: 1 MG, UNK
  5. CALCIUM + VITAMIN D                /01817601/ [Concomitant]
     Dosage: UNK UKN, UNK

REACTIONS (2)
  - Breast cancer [Unknown]
  - Cough [Unknown]
